FAERS Safety Report 16161307 (Version 1)
Quarter: 2019Q2

REPORT INFORMATION
  Report Type: Spontaneous
  Country: US (occurrence: US)
  Receive Date: 20190405
  Receipt Date: 20190405
  Transmission Date: 20190711
  Serious: No
  Sender: FDA-Public Use
  Company Number: US-TEVA-2019-US-1031698

PATIENT
  Sex: Female

DRUGS (3)
  1. AUSTEDO [Suspect]
     Active Substance: DEUTETRABENAZINE
     Indication: TARDIVE DYSKINESIA
  2. AUSTEDO [Suspect]
     Active Substance: DEUTETRABENAZINE
     Dosage: 6 MILLIGRAM DAILY;
     Dates: start: 201903
  3. AUSTEDO [Suspect]
     Active Substance: DEUTETRABENAZINE

REACTIONS (3)
  - Tardive dyskinesia [Recovering/Resolving]
  - Dizziness [Recovered/Resolved]
  - Nausea [Recovered/Resolved]
